FAERS Safety Report 4775672-2 (Version None)
Quarter: 2005Q3

REPORT INFORMATION
  Report Type: 
  Country: None (occurrence: None)
  Receive Date: 20050920
  Receipt Date: 20050906
  Transmission Date: 20060218
  Serious: Yes (Hospitalization)
  Sender: FDA-Public Use
  Company Number: CAMP-10026

PATIENT
  Age: 49 Year
  Sex: Female

DRUGS (6)
  1. CAMPATH [Suspect]
     Indication: MULTIPLE SCLEROSIS
     Dosage: 12 MG QD IV
     Route: 042
     Dates: start: 20030721, end: 20030725
  2. CAMPATH [Suspect]
     Indication: MULTIPLE SCLEROSIS
     Dosage: 12 MG QD IV
     Route: 042
     Dates: start: 20040719, end: 20040721
  3. CAMPATH [Suspect]
     Indication: MULTIPLE SCLEROSIS
     Dosage: 12 MG QD IV
     Route: 042
     Dates: start: 20050725, end: 20050725
  4. RITALIN [Concomitant]
  5. PROVIGIL [Concomitant]
  6. BENADRYL [Concomitant]

REACTIONS (4)
  - AUTOANTIBODY POSITIVE [None]
  - IDIOPATHIC THROMBOCYTOPENIC PURPURA [None]
  - PETECHIAE [None]
  - TREATMENT NONCOMPLIANCE [None]
